FAERS Safety Report 13807706 (Version 1)
Quarter: 2017Q3

REPORT INFORMATION
  Report Type: Report from Study
  Country: US (occurrence: US)
  Receive Date: 20170728
  Receipt Date: 20170728
  Transmission Date: 20171127
  Serious: No
  Sender: FDA-Public Use
  Company Number: US-AMNEAL PHARMACEUTICALS-2017AMN00292

PATIENT
  Sex: Male

DRUGS (1)
  1. TRAMADOL HYDROCHLORIDE. [Suspect]
     Active Substance: TRAMADOL HYDROCHLORIDE

REACTIONS (3)
  - Pain [Recovered/Resolved]
  - Withdrawal syndrome [Recovered/Resolved]
  - Product quality issue [Recovered/Resolved]
